APPROVED DRUG PRODUCT: PYRIDOSTIGMINE BROMIDE
Active Ingredient: PYRIDOSTIGMINE BROMIDE
Strength: 180MG
Dosage Form/Route: TABLET, EXTENDED RELEASE;ORAL
Application: A203184 | Product #001
Applicant: IMPAX LABORATORIES INC
Approved: Sep 15, 2015 | RLD: No | RS: No | Type: DISCN